FAERS Safety Report 14971271 (Version 6)
Quarter: 2020Q2

REPORT INFORMATION
  Report Type: Report from Study
  Country: US (occurrence: US)
  Receive Date: 20180604
  Receipt Date: 20200504
  Transmission Date: 20200713
  Serious: Yes (Death, Hospitalization)
  Sender: FDA-Public Use
  Company Number: US-ACTELION-A-NJ2018-173074

PATIENT
  Sex: Female

DRUGS (3)
  1. ADCIRCA [Concomitant]
     Active Substance: TADALAFIL
  2. DOFETILIDE. [Concomitant]
     Active Substance: DOFETILIDE
  3. OPSUMIT [Suspect]
     Active Substance: MACITENTAN
     Indication: PULMONARY ARTERIAL HYPERTENSION
     Dosage: 10 MG, QD
     Route: 048
     Dates: start: 20180412

REACTIONS (8)
  - Pneumonia [Recovered/Resolved]
  - Hospitalisation [Unknown]
  - Pulmonary arterial hypertension [Fatal]
  - Cellulitis [Unknown]
  - Disease complication [Fatal]
  - Adverse event [Unknown]
  - Atrial flutter [Unknown]
  - Heart rate irregular [Unknown]
